FAERS Safety Report 7370549-0 (Version None)
Quarter: 2011Q1

REPORT INFORMATION
  Report Type: 
  Country: None (occurrence: None)
  Receive Date: 20110323
  Receipt Date: 20110309
  Transmission Date: 20110831
  Serious: No
  Sender: FDA-Public Use
  Company Number: US-BAYER-2011-023362

PATIENT
  Sex: Female
  Weight: 50 kg

DRUGS (2)
  1. ALEVE (CAPLET) [Suspect]
     Indication: HEADACHE
     Dosage: 220 MG, UNK
     Route: 048
     Dates: start: 20110309
  2. XYZAL [Concomitant]
     Indication: HYPERSENSITIVITY

REACTIONS (7)
  - CHILLS [None]
  - HEADACHE [None]
  - NAUSEA [None]
  - FATIGUE [None]
  - SOMNOLENCE [None]
  - DIZZINESS [None]
  - FEELING HOT [None]
